FAERS Safety Report 5130008-2 (Version None)
Quarter: 2006Q4

REPORT INFORMATION
  Report Type: 
  Country: None (occurrence: None)
  Receive Date: 20061013
  Receipt Date: 20060928
  Transmission Date: 20070319
  Serious: Yes (Hospitalization)
  Sender: FDA-Public Use
  Company Number: 230872

PATIENT
  Age: 63 Year
  Sex: Male

DRUGS (4)
  1. AVASTIN [Suspect]
     Indication: NEOPLASM
     Dosage: INTRAVENOUS
     Route: 042
     Dates: start: 20060505, end: 20060802
  2. SECTRAL [Concomitant]
  3. ALLOPURINOL [Concomitant]
  4. NIFEDIPINE [Concomitant]

REACTIONS (4)
  - CONDITION AGGRAVATED [None]
  - ESCHAR [None]
  - OSTEITIS [None]
  - SKIN NECROSIS [None]
